FAERS Safety Report 9336290 (Version 1)
Quarter: 2013Q2

REPORT INFORMATION
  Report Type: Spontaneous
  Country: TR (occurrence: TR)
  Receive Date: 20130607
  Receipt Date: 20130607
  Transmission Date: 20140414
  Serious: Yes (Other)
  Sender: FDA-Public Use
  Company Number: TR-AMGEN-TURSP2013012658

PATIENT
  Age: 39 Year
  Sex: Female

DRUGS (2)
  1. ENBREL [Suspect]
     Indication: ANKYLOSING SPONDYLITIS
     Dosage: 50 MG, WEEKLY
     Route: 058
     Dates: start: 20111104, end: 20130201
  2. ENBREL [Suspect]
     Dosage: 50 MG, QWK
     Route: 058

REACTIONS (6)
  - Eczema [Not Recovered/Not Resolved]
  - Pruritus [Unknown]
  - Musculoskeletal stiffness [Not Recovered/Not Resolved]
  - Muscle spasms [Not Recovered/Not Resolved]
  - Tooth disorder [Recovered/Resolved]
  - Tooth infection [Recovered/Resolved]
